FAERS Safety Report 4752210-1 (Version None)
Quarter: 2005Q3

REPORT INFORMATION
  Report Type: 
  Country: None (occurrence: None)
  Receive Date: 20050824
  Receipt Date: 20050824
  Transmission Date: 20060218
  Serious: Yes (Other)
  Sender: FDA-Public Use
  Company Number: None

PATIENT
  Sex: Male
  Weight: 103.2 kg

DRUGS (4)
  1. OXALIPLATIN [Suspect]
     Indication: COLON CANCER
     Dosage: SEE IMAGE
     Route: 042
     Dates: start: 20050802, end: 20050816
  2. LEUCOVORIN [Suspect]
     Dosage: SEE IMAGE
     Route: 042
     Dates: start: 20050802, end: 20050813
  3. 5-FU [Suspect]
     Dosage: SEE IMAGE
     Route: 042
     Dates: start: 20050802, end: 20050816
  4. 5-FU [Suspect]
     Dosage: SEE IMAGE
     Route: 042
     Dates: start: 20050802, end: 20050816

REACTIONS (3)
  - HYPERCHOLESTEROLAEMIA [None]
  - HYPERTRIGLYCERIDAEMIA [None]
  - LIPIDS INCREASED [None]
